FAERS Safety Report 18019725 (Version 1)
Quarter: 2020Q3

REPORT INFORMATION
  Report Type: Spontaneous
  Country: US (occurrence: US)
  Receive Date: 20200714
  Receipt Date: 20200714
  Transmission Date: 20201103
  Serious: No
  Sender: FDA-Public Use
  Company Number: None

PATIENT
  Age: 36 Year
  Sex: Male
  Weight: 112.5 kg

DRUGS (2)
  1. ZOLOFT [Concomitant]
     Active Substance: SERTRALINE HYDROCHLORIDE
  2. BLUMEN CLEAR ADVANCED HAND SANITIZER [Suspect]
     Active Substance: ALCOHOL
     Indication: ANTIBIOTIC PROPHYLAXIS
     Dosage: ?          QUANTITY:1 SPRAY(S);?
     Dates: start: 20200601, end: 20200714

REACTIONS (5)
  - Scab [None]
  - Rash [None]
  - Skin fissures [None]
  - Haemorrhage [None]
  - Pruritus [None]

NARRATIVE: CASE EVENT DATE: 20200701
